FAERS Safety Report 5525933-4 (Version None)
Quarter: 2007Q4

REPORT INFORMATION
  Report Type: 
  Country: None (occurrence: None)
  Receive Date: 20071126
  Receipt Date: 20071114
  Transmission Date: 20080405
  Serious: Yes (Hospitalization)
  Sender: FDA-Public Use
  Company Number: US-PFIZER INC-2007097440

PATIENT

DRUGS (1)
  1. CHANTIX [Suspect]

REACTIONS (3)
  - DYSPHAGIA [None]
  - LIP SWELLING [None]
  - RASH [None]
